FAERS Safety Report 6912658-3 (Version None)
Quarter: 2010Q3

REPORT INFORMATION
  Report Type: 
  Country: None (occurrence: None)
  Receive Date: 20100806
  Receipt Date: 20080913
  Transmission Date: 20110219
  Serious: No
  Sender: FDA-Public Use
  Company Number: US-PFIZER INC-2008078955

PATIENT
  Sex: Female
  Weight: 63.636 kg

DRUGS (2)
  1. DETROL LA [Suspect]
     Indication: POLLAKIURIA
     Dates: start: 20070101, end: 20070101
  2. VITAMIN TAB [Concomitant]

REACTIONS (4)
  - DIZZINESS [None]
  - MENTAL DISORDER [None]
  - THIRST [None]
  - WEIGHT DECREASED [None]
